FAERS Safety Report 8891685 (Version 4)
Quarter: 2014Q1

REPORT INFORMATION
  Report Type: Spontaneous
  Country: US (occurrence: None)
  Receive Date: 20121031
  Receipt Date: 20140203
  Transmission Date: 20141002
  Serious: Yes (Death, Life-Threatening, Hospitalization)
  Sender: FDA-Public Use
  Company Number: 2012SGN00471

PATIENT
  Age: 68 Year
  Sex: Male

DRUGS (22)
  1. BRENTUXIMAB VEDOTIN [Suspect]
     Indication: ACUTE GRAFT VERSUS HOST DISEASE
     Dosage: 0.6 MG/KG, QCYCLE, INTRAVENOUS
     Route: 042
     Dates: start: 20120910, end: 20120924
  2. ACYCLOVIR ALPHARMA(ACICLOVIR) [Concomitant]
  3. CALCIUM CITRATE W/VITAMIN D NOS (CALCIUM CITRATE W/VITAMIN D NOS) [Concomitant]
  4. DAPSONE (DAPSONE) [Concomitant]
  5. FAMOTIDINE (FAMOTIDINE) [Concomitant]
  6. FOLATE (FOLIC ACID) [Concomitant]
  7. GLIPIZIDE (GLIPIZIDE) [Concomitant]
  8. MAGNESIUM OXIDE (MAGNESIUM OXIDE) [Concomitant]
  9. MULTIVITAMIN (VITAMINS NOS) [Concomitant]
  10. NOVOLIN N (INSULIN HUMAN INJECTION, ISOPHANE) [Concomitant]
  11. PREDNISONE (PREDNISONE ACETATE) [Concomitant]
  12. SIROLIMUS (SIROLIMUS) [Concomitant]
  13. TACROLIMUS (TACROLIMUS) [Concomitant]
  14. ACETAMINOPHEN [Concomitant]
  15. CALCIUM CARBONATE W/ VITAMIN D (CALCIUM CARBONATE, COLECALCIFEROL) [Concomitant]
  16. DEXAMETHASONE (DEXAMETHASONE SODIUM PHOSPHATE) [Concomitant]
  17. DOCUSATE SODIUM [Concomitant]
  18. METRONIDAZOLE (METRONIDAZOLE SODIUM) [Concomitant]
  19. MORPHINE SULFATE [Concomitant]
  20. OXYCODONE [Concomitant]
  21. VALIUM (DIAZEPAM) [Concomitant]
  22. VESICARE (SOLIFENACIN) [Concomitant]

REACTIONS (7)
  - Lymphopenia [None]
  - Abdominal pain [None]
  - Febrile neutropenia [None]
  - Lymphoma [None]
  - Thrombocytopenia [None]
  - T-cell lymphoma [None]
  - Malignant neoplasm progression [None]
